FAERS Safety Report 11700901 (Version 1)
Quarter: 2015Q4

REPORT INFORMATION
  Report Type: Spontaneous
  Country: US (occurrence: US)
  Receive Date: 20151104
  Receipt Date: 20151104
  Transmission Date: 20160304
  Serious: No
  Sender: FDA-Public Use
  Company Number: US-ELI_LILLY_AND_COMPANY-US201101002463

PATIENT
  Sex: Female

DRUGS (5)
  1. FORTEO [Suspect]
     Active Substance: TERIPARATIDE
     Dosage: UNK, UNKNOWN
     Route: 065
     Dates: start: 20101227, end: 20110110
  2. CITRACAL [Concomitant]
     Active Substance: CALCIUM CITRATE
  3. CALCIUM [Concomitant]
     Active Substance: CALCIUM
  4. CALCIUM CARBONATE. [Concomitant]
     Active Substance: CALCIUM CARBONATE
  5. FORTEO [Suspect]
     Active Substance: TERIPARATIDE
     Indication: OSTEOPOROSIS
     Dosage: UNK, UNKNOWN
     Route: 065
     Dates: start: 20101116, end: 20101123

REACTIONS (5)
  - Adverse event [Unknown]
  - Pain [Unknown]
  - Expired product administered [Unknown]
  - General physical health deterioration [Unknown]
  - Abdominal discomfort [Unknown]
